FAERS Safety Report 20444875 (Version 2)
Quarter: 2022Q1

REPORT INFORMATION
  Report Type: Report from Study
  Country: US (occurrence: US)
  Receive Date: 20220208
  Receipt Date: 20220218
  Transmission Date: 20220423
  Serious: No
  Sender: FDA-Public Use
  Company Number: US-NOVARTISTESTPH-NVSC2022US027504

PATIENT
  Sex: Female

DRUGS (2)
  1. KESIMPTA [Suspect]
     Active Substance: OFATUMUMAB
     Indication: Multiple sclerosis
     Dosage: UNK
     Route: 065
  2. KESIMPTA [Suspect]
     Active Substance: OFATUMUMAB
     Indication: Relapsing multiple sclerosis
     Route: 065

REACTIONS (6)
  - Muscular weakness [Recovering/Resolving]
  - Feeling hot [Recovering/Resolving]
  - Fatigue [Recovering/Resolving]
  - Asthenia [Recovered/Resolved]
  - Pyrexia [Recovered/Resolved]
  - Bladder disorder [Unknown]
